FAERS Safety Report 9654156 (Version 1)
Quarter: 2013Q4

REPORT INFORMATION
  Report Type: Spontaneous
  Country: US (occurrence: None)
  Receive Date: 20131028
  Receipt Date: 20131028
  Transmission Date: 20140711
  Serious: Yes (Death, Hospitalization)
  Sender: FDA-Public Use
  Company Number: 201310-US-001499

PATIENT
  Age: 46 Year
  Sex: Male

DRUGS (9)
  1. FLEET ENEMA [Suspect]
     Indication: CONSTIPATION
     Dosage: 708 ML, 6 IN 24 HOURS, RECTAL
     Route: 054
  2. AMIODARONE (AMIODARONE) [Concomitant]
  3. MORPHINE SA (MORPHINE) [Concomitant]
  4. OXICODONE [Concomitant]
  5. SENNA (SENNA ALEXANDRINA) [Concomitant]
  6. COLACE [Concomitant]
  7. MIRALAX [Concomitant]
  8. LACTOLOSE (LACTULOSE) [Concomitant]
  9. SOAP ENEMA (SOFT SOAP) [Concomitant]

REACTIONS (8)
  - Ventricular tachycardia [None]
  - Back pain [None]
  - Constipation [None]
  - Fatigue [None]
  - Confusional state [None]
  - Bradycardia [None]
  - Unresponsive to stimuli [None]
  - Pulseless electrical activity [None]
